FAERS Safety Report 7326415-X (Version None)
Quarter: 2011Q1

REPORT INFORMATION
  Report Type: 
  Country: None (occurrence: None)
  Receive Date: 20110302
  Receipt Date: 20110220
  Transmission Date: 20110831
  Serious: Yes (Other)
  Sender: FDA-Public Use
  Company Number: US-RB-021722-11

PATIENT
  Sex: Male

DRUGS (1)
  1. DELSYM [Suspect]
     Dosage: PATIENT DRANK TWO BOTTLES
     Route: 048

REACTIONS (2)
  - OVERDOSE [None]
  - DRUG ABUSE [None]
